FAERS Safety Report 5989363-3 (Version None)
Quarter: 2008Q4

REPORT INFORMATION
  Report Type: 
  Country: None (occurrence: None)
  Receive Date: 20081205
  Receipt Date: 20081121
  Transmission Date: 20090506
  Serious: Yes (Hospitalization)
  Sender: FDA-Public Use
  Company Number: 2008SP002978

PATIENT
  Sex: Female

DRUGS (5)
  1. XOPENEX [Suspect]
     Indication: CHRONIC OBSTRUCTIVE PULMONARY DISEASE
     Dosage: 1.25 MG/3ML;PRN;INHALATION; 1.25 MG/3ML;PRN;INHALATION
     Route: 055
     Dates: start: 20080101, end: 20080301
  2. XOPENEX [Suspect]
     Indication: CHRONIC OBSTRUCTIVE PULMONARY DISEASE
     Dosage: 1.25 MG/3ML;PRN;INHALATION; 1.25 MG/3ML;PRN;INHALATION
     Route: 055
     Dates: start: 20080101
  3. AMLODIPINE [Concomitant]
  4. NEXIUM [Concomitant]
  5. RANITIDINE [Concomitant]

REACTIONS (10)
  - AMNESIA [None]
  - APHAGIA [None]
  - ARTHRALGIA [None]
  - BONE PAIN [None]
  - CHRONIC OBSTRUCTIVE PULMONARY DISEASE [None]
  - CONDITION AGGRAVATED [None]
  - DIZZINESS [None]
  - PULMONARY EMBOLISM [None]
  - THROAT IRRITATION [None]
  - THROMBOSIS [None]
